FAERS Safety Report 16792739 (Version 1)
Quarter: 2019Q3

REPORT INFORMATION
  Report Type: Spontaneous
  Country: CN (occurrence: CN)
  Receive Date: 20190910
  Receipt Date: 20190910
  Transmission Date: 20191005
  Serious: Yes (Hospitalization)
  Sender: FDA-Public Use
  Company Number: CN-BAXTER-2019BAX017507

PATIENT
  Age: 17 Year
  Sex: Male

DRUGS (7)
  1. RECOMBINANT HUMAN GRANULOCYTE COLONY-STIMULATING FACTOR [Concomitant]
     Active Substance: GRANULOCYTE COLONY-STIMULATING FACTOR NOS
     Indication: PROPHYLAXIS
     Route: 058
     Dates: start: 20190617
  2. HOLOXAN [Suspect]
     Active Substance: IFOSFAMIDE
     Dosage: THIRD CYCLE CHEMOTHERAPY, HOLOXAN + NORMAL SALINE
     Route: 041
     Dates: start: 20190607, end: 20190607
  3. 0.9% SODIUM CHLORIDE INJECTION [Suspect]
     Active Substance: SODIUM CHLORIDE
     Dosage: THIRD CYCLE CHEMOTHERAPY, HOLOXAN + NORMAL SALINE
     Route: 041
     Dates: start: 20190607, end: 20190607
  4. HOLOXAN [Suspect]
     Active Substance: IFOSFAMIDE
     Indication: OSTEOSARCOMA
     Dosage: FIRST AND SECOND CYCLE CHEMOTHERAPY, HOLOXAN + NORMAL SALINE
     Route: 041
  5. HOLOXAN [Suspect]
     Active Substance: IFOSFAMIDE
     Dosage: DOSE RE-INTRODUCED, HOLOXAN + NORMAL SALINE
     Route: 041
  6. 0.9% SODIUM CHLORIDE INJECTION [Suspect]
     Active Substance: SODIUM CHLORIDE
     Indication: MEDICATION DILUTION
     Dosage: FIRST AND SECOND CYCLE CHEMOTHERAPY, HOLOXAN + NORMAL SALINE
     Route: 041
  7. 0.9% SODIUM CHLORIDE INJECTION [Suspect]
     Active Substance: SODIUM CHLORIDE
     Dosage: DOSE RE-INTRODUCED, HOLOXAN + NORMAL SALINE
     Route: 041

REACTIONS (1)
  - Bone marrow failure [Recovering/Resolving]

NARRATIVE: CASE EVENT DATE: 20190618
